FAERS Safety Report 9713069 (Version 2)
Quarter: 2014Q2

REPORT INFORMATION
  Report Type: Spontaneous
  Country: US (occurrence: US)
  Receive Date: 20131126
  Receipt Date: 20140510
  Transmission Date: 20141212
  Serious: No
  Sender: FDA-Public Use
  Company Number: US-BRISTOL-MYERS SQUIBB COMPANY-19405992

PATIENT
  Age: 63 Year
  Sex: Female
  Weight: 75.28 kg

DRUGS (2)
  1. BYDUREON [Suspect]
     Indication: TYPE 2 DIABETES MELLITUS
     Dosage: PRESCRIPTION #6966094?2ND DOSE: 14SEP2013
     Dates: start: 20130904
  2. METFORMIN [Suspect]
     Route: 048

REACTIONS (8)
  - Injection site reaction [Not Recovered/Not Resolved]
  - Underdose [Unknown]
  - Thirst [Not Recovered/Not Resolved]
  - Urine output increased [Not Recovered/Not Resolved]
  - Constipation [Not Recovered/Not Resolved]
  - Blood glucose increased [Recovering/Resolving]
  - Abdominal discomfort [Recovered/Resolved]
  - Injection site extravasation [Unknown]
